FAERS Safety Report 20639293 (Version 1)
Quarter: 2022Q1

REPORT INFORMATION
  Report Type: Spontaneous
  Country: US (occurrence: None)
  Receive Date: 20220326
  Receipt Date: 20220326
  Transmission Date: 20220423
  Serious: Yes (Other)
  Sender: FDA-Public Use
  Company Number: US-ROCHE-3060719

PATIENT

DRUGS (1)
  1. ALECENSA [Suspect]
     Active Substance: ALECTINIB HYDROCHLORIDE
     Indication: Lung adenocarcinoma
     Route: 048
     Dates: start: 202202

REACTIONS (2)
  - Device related infection [Not Recovered/Not Resolved]
  - Oesophagitis [Not Recovered/Not Resolved]

NARRATIVE: CASE EVENT DATE: 20220317
